FAERS Safety Report 8370813-2 (Version None)
Quarter: 2012Q2

REPORT INFORMATION
  Report Type: 
  Country: None (occurrence: None)
  Receive Date: 20120518
  Receipt Date: 20111007
  Transmission Date: 20120825
  Serious: No
  Sender: FDA-Public Use
  Company Number: US-ASTRAZENECA-2011SE67682

PATIENT
  Age: 38 Year
  Sex: Female

DRUGS (4)
  1. PRILOSEC OTC [Suspect]
     Indication: DYSPEPSIA
     Route: 048
     Dates: start: 20111007, end: 20111007
  2. ABILIFY [Concomitant]
     Dosage: UNKNOWN
  3. METFORMIN HCL [Concomitant]
     Dosage: UNKNOWN
  4. CYMBALTA [Concomitant]
     Dosage: UNKNOWN

REACTIONS (1)
  - BLEPHAROSPASM [None]
